FAERS Safety Report 23471898 (Version 1)
Quarter: 2024Q1

REPORT INFORMATION
  Report Type: Spontaneous
  Country: US (occurrence: US)
  Receive Date: 20240202
  Receipt Date: 20240202
  Transmission Date: 20240410
  Serious: Yes (Hospitalization)
  Sender: FDA-Public Use
  Company Number: US-SANDOZ-SDZ2023US055757

PATIENT
  Age: 3 Year
  Sex: Female

DRUGS (3)
  1. NEVIRAPINE [Suspect]
     Active Substance: NEVIRAPINE
     Indication: HIV infection
     Dosage: 1300 MG/M2
     Route: 065
  2. LAMIVUDINE [Concomitant]
     Active Substance: LAMIVUDINE
     Indication: HIV infection
     Dosage: UNK
     Route: 065
  3. ZIDOVUDINE [Concomitant]
     Active Substance: ZIDOVUDINE
     Indication: HIV infection
     Dosage: 73 MG/KG
     Route: 065

REACTIONS (5)
  - Drug hypersensitivity [Unknown]
  - Drug eruption [Unknown]
  - Pyrexia [Unknown]
  - Accidental overdose [Unknown]
  - Product administration error [Unknown]
